FAERS Safety Report 9829889 (Version 1)
Quarter: 2014Q1

REPORT INFORMATION
  Report Type: Spontaneous
  Country: AT (occurrence: AT)
  Receive Date: 20140120
  Receipt Date: 20140120
  Transmission Date: 20141002
  Serious: Yes (Other)
  Sender: FDA-Public Use
  Company Number: AT-ASTELLAS-2014EU000298

PATIENT
  Age: 50 Year
  Sex: Male

DRUGS (1)
  1. TACROLIMUS SYSTEMIC [Suspect]
     Indication: LUNG TRANSPLANT
     Dosage: UNK
     Route: 065

REACTIONS (9)
  - Off label use [Unknown]
  - Lung transplant rejection [Unknown]
  - Diabetes mellitus [Unknown]
  - Urinary retention [Unknown]
  - Pulmonary embolism [Unknown]
  - Thrombosis [Unknown]
  - Cardiac failure [Unknown]
  - Pancreatitis relapsing [Unknown]
  - T-cell lymphoma [Recovered/Resolved]
